FAERS Safety Report 9260529 (Version 9)
Quarter: 2020Q3

REPORT INFORMATION
  Report Type: Spontaneous
  Country: BR (occurrence: BR)
  Receive Date: 20130429
  Receipt Date: 20200908
  Transmission Date: 20201103
  Serious: Yes (Other)
  Sender: FDA-Public Use
  Company Number: BR-AMGEN-BRASP2013029183

PATIENT
  Age: 47 Year
  Sex: Male
  Weight: 81 kg

DRUGS (7)
  1. TOFRANIL [Concomitant]
     Active Substance: IMIPRAMINE HYDROCHLORIDE
     Indication: DEPRESSION
     Dosage: 2 TABLETS (STRENGTH 25 MG) DAILY
  2. SODIUM VALPROATE [Concomitant]
     Active Substance: VALPROATE SODIUM
     Indication: DEPRESSION
     Dosage: 2 DF, DAILY (2 TABLETS (STRENGTH 250 (UNITS NOT INFORMED)) DAILY)
  3. CARBAMAZEPINE. [Concomitant]
     Active Substance: CARBAMAZEPINE
     Indication: DEPRESSION
     Dosage: 800 MG, DAILY(4 TABLETS DAILY)
  4. METHOTREXATE. [Concomitant]
     Active Substance: METHOTREXATE
     Dosage: 10 MG, WEEKLY (4 TABLETS PER WEEK)
  5. ENBREL [Suspect]
     Active Substance: ETANERCEPT
     Indication: PSORIATIC ARTHROPATHY
     Dosage: 25 MG, 2X/WEEK
     Route: 058
     Dates: start: 201104, end: 201601
  6. ENBREL [Suspect]
     Active Substance: ETANERCEPT
     Dosage: 25 MG, 2X/WEEK
     Route: 058
     Dates: start: 20160128, end: 20180201
  7. ENBREL [Suspect]
     Active Substance: ETANERCEPT
     Dosage: UNK
     Route: 065
     Dates: start: 201711, end: 2019

REACTIONS (10)
  - Pyrexia [Unknown]
  - Pulmonary mass [Unknown]
  - Tuberculosis [Unknown]
  - Pain [Recovered/Resolved]
  - Influenza [Recovered/Resolved]
  - Glucose tolerance impaired [Unknown]
  - Emotional disorder [Unknown]
  - Dengue fever [Not Recovered/Not Resolved]
  - Asthenopia [Unknown]
  - Hypertension [Unknown]

NARRATIVE: CASE EVENT DATE: 20160110
